FAERS Safety Report 4591240-X (Version None)
Quarter: 2005Q1

REPORT INFORMATION
  Report Type: 
  Country: None (occurrence: None)
  Receive Date: 20050222
  Receipt Date: 20050208
  Transmission Date: 20050727
  Serious: Yes (Death, Life-Threatening, Hospitalization, Disabling)
  Sender: FDA-Public Use
  Company Number: 2005027738

PATIENT
  Age: 49 Year
  Sex: Male
  Weight: 61 kg

DRUGS (14)
  1. PREDNISONE [Suspect]
     Indication: RENAL TRANSPLANT
     Dosage: 10 MG (10 MG, 1 IN 1 D), ORAL
     Route: 048
  2. HYDROCORTISONE [Suspect]
     Indication: RENAL TRANSPLANT
     Dosage: INTRAVENOUS
     Route: 042
  3. MYCOPHENOLATE MOFETIL (MYCOPHENOLATE MOFETIL) [Suspect]
     Indication: RENAL TRANSPLANT
     Dosage: 2000 MG (500 MG, 4 IN 1 D), ORAL
     Route: 048
  4. ENOXAPARIN SODIUM [Concomitant]
  5. LOSARTAN (LOSARTAN) [Concomitant]
  6. OMEPRAZOLE [Concomitant]
  7. LANSOPRAZOLE [Concomitant]
  8. INDORAMIN [Concomitant]
  9. BIOTIN [Concomitant]
  10. AMOXICILLIN [Concomitant]
  11. SODIUM BICARBONATE IN PLASTIC CONTAINER [Concomitant]
  12. METRONIDAZ9OLE (METRONIDAZOLE) [Concomitant]
  13. BENZYDAMINE HYDROCHLORIDE (BENZYDAMINE HYDROCHLORIDE) [Concomitant]
  14. NYSTATIN [Concomitant]

REACTIONS (5)
  - CYTOMEGALOVIRUS COLITIS [None]
  - CYTOMEGALOVIRUS INFECTION [None]
  - GASTROINTESTINAL HAEMORRHAGE [None]
  - METABOLIC ACIDOSIS [None]
  - RENAL FAILURE ACUTE [None]
